FAERS Safety Report 4430517-5 (Version None)
Quarter: 2004Q3

REPORT INFORMATION
  Report Type: 
  Country: None (occurrence: None)
  Receive Date: 20040721
  Receipt Date: 20030815
  Transmission Date: 20050211
  Serious: Yes (Life-Threatening)
  Sender: FDA-Public Use
  Company Number: OMPQ-PR-0308S-0561(0)

PATIENT
  Age: 24 Year
  Sex: Male

DRUGS (2)
  1. OMNIPAQUE 140 [Suspect]
     Indication: LUNG DISORDER
     Dosage: 150 ML, SINGLE DOSE, I.V.
     Route: 042
     Dates: start: 20030812, end: 20030812
  2. INHALER [Concomitant]

REACTIONS (1)
  - ANAPHYLACTIC REACTION [None]
